FAERS Safety Report 8332629-2 (Version None)
Quarter: 2012Q2

REPORT INFORMATION
  Report Type: 
  Country: None (occurrence: None)
  Receive Date: 20120503
  Receipt Date: 20120418
  Transmission Date: 20120825
  Serious: Yes (Other)
  Sender: FDA-Public Use
  Company Number: CN-JNJFOC-20120501508

PATIENT
  Sex: Male
  Weight: 74 kg

DRUGS (2)
  1. MICONAZOLE [Suspect]
     Route: 061
  2. MICONAZOLE [Suspect]
     Indication: TINEA PEDIS
     Route: 061
     Dates: start: 20110502, end: 20110502

REACTIONS (1)
  - ANAPHYLACTOID REACTION [None]
